FAERS Safety Report 12573224 (Version 4)
Quarter: 2016Q3

REPORT INFORMATION
  Report Type: Spontaneous
  Country: IT (occurrence: IT)
  Receive Date: 20160720
  Receipt Date: 20160826
  Transmission Date: 20161109
  Serious: Yes (Other)
  Sender: FDA-Public Use
  Company Number: IT-TEVA-677789ACC

PATIENT
  Age: 10 Year
  Sex: Female

DRUGS (2)
  1. LEVETIRACETAM. [Suspect]
     Active Substance: LEVETIRACETAM
     Dosage: 800 MILLIGRAM DAILY;
  2. LEVETIRACETAM. [Suspect]
     Active Substance: LEVETIRACETAM
     Indication: SEIZURE
     Dosage: 600 MILLIGRAM DAILY;
     Route: 048

REACTIONS (8)
  - Arthralgia [Unknown]
  - Musculoskeletal stiffness [Unknown]
  - Muscle rigidity [Recovered/Resolved]
  - Osteochondrosis [Recovered/Resolved]
  - Arthralgia [Recovered/Resolved]
  - Swelling [Unknown]
  - Oedema peripheral [Recovered/Resolved]
  - Tenderness [Unknown]
